FAERS Safety Report 22079895 (Version 2)
Quarter: 2023Q2

REPORT INFORMATION
  Report Type: Report from Study
  Country: CH (occurrence: CH)
  Receive Date: 20230309
  Receipt Date: 20230413
  Transmission Date: 20230721
  Serious: Yes (Other)
  Sender: FDA-Public Use
  Company Number: CH-ABBVIE-4327259

PATIENT
  Age: 72 Year
  Sex: Male

DRUGS (3)
  1. CARBIDOPA\LEVODOPA [Suspect]
     Active Substance: CARBIDOPA\LEVODOPA
     Indication: Parkinson^s disease
     Dosage: MD 7.5ML, CRD 3.5 ML/H, ED 1.0ML?FREQUENCY TEXT: 16H THERAPY
     Route: 050
     Dates: start: 20220818, end: 20221229
  2. CARBIDOPA\LEVODOPA [Suspect]
     Active Substance: CARBIDOPA\LEVODOPA
     Dosage: MD 4.5ML, CRD 3.1 ML/H, ED 1.0ML?FREQUENCY TEXT: 16H THERAPY
     Route: 050
     Dates: start: 20220816, end: 20220818
  3. CARBIDOPA\LEVODOPA [Suspect]
     Active Substance: CARBIDOPA\LEVODOPA
     Dosage: MD 7.5ML, CRD 3.8 ML/H, ED 1.0ML?FREQUENCY TEXT: 16H THERAPY
     Route: 050
     Dates: start: 20221229

REACTIONS (5)
  - Communication disorder [Not Recovered/Not Resolved]
  - Bradykinesia [Not Recovered/Not Resolved]
  - Dyskinesia [Not Recovered/Not Resolved]
  - Bedridden [Not Recovered/Not Resolved]
  - Hallucination [Recovering/Resolving]

NARRATIVE: CASE EVENT DATE: 20220801
